FAERS Safety Report 4879532-8 (Version None)
Quarter: 2006Q1

REPORT INFORMATION
  Report Type: 
  Country: None (occurrence: None)
  Receive Date: 20060111
  Receipt Date: 20051215
  Transmission Date: 20060701
  Serious: Yes (Hospitalization)
  Sender: FDA-Public Use
  Company Number: 28292

PATIENT
  Age: 47 Year
  Sex: Female

DRUGS (4)
  1. FLECAINIDE ACETATE [Suspect]
  2. AMITRIPTYLINE HCL [Concomitant]
  3. LOSARTAN [Concomitant]
  4. AMLODIPINE [Concomitant]

REACTIONS (9)
  - ACUTE MYOCARDIAL INFARCTION [None]
  - ATRIAL FIBRILLATION [None]
  - HYPOTENSION [None]
  - LOSS OF CONSCIOUSNESS [None]
  - OVERDOSE [None]
  - PCO2 INCREASED [None]
  - SOMNOLENCE [None]
  - URINE OUTPUT DECREASED [None]
  - VENTRICULAR DYSFUNCTION [None]
